FAERS Safety Report 10743622 (Version 2)
Quarter: 2015Q1

REPORT INFORMATION
  Report Type: Spontaneous
  Country: US (occurrence: US)
  Receive Date: 20150128
  Receipt Date: 20150309
  Transmission Date: 20150721
  Serious: No
  Sender: FDA-Public Use
  Company Number: US-BRISTOL-MYERS SQUIBB COMPANY-BMS-2015-002034

PATIENT
  Sex: Female
  Weight: 68 kg

DRUGS (2)
  1. ORENCIA [Suspect]
     Active Substance: ABATACEPT
     Indication: RHEUMATOID ARTHRITIS
     Dosage: 125 ML, QWK
     Route: 058
  2. METHOTREXATE [Suspect]
     Active Substance: METHOTREXATE
     Indication: PRODUCT USED FOR UNKNOWN INDICATION
     Dosage: 2.5 MG, UNK(8 PILLS)
     Route: 065

REACTIONS (6)
  - Fall [Unknown]
  - Joint swelling [Unknown]
  - Weight increased [Unknown]
  - Neck pain [Unknown]
  - Arthropathy [Unknown]
  - Arthritis [Unknown]
